FAERS Safety Report 4567807-1 (Version None)
Quarter: 2005Q1

REPORT INFORMATION
  Report Type: 
  Country: None (occurrence: None)
  Receive Date: 20050128
  Receipt Date: 20041108
  Transmission Date: 20050727
  Serious: Yes (Disabling)
  Sender: FDA-Public Use
  Company Number: GXKR2004DE00705

PATIENT
  Age: 66 Year
  Sex: Male

DRUGS (4)
  1. LISINOPRIL [Suspect]
     Indication: HYPERTENSION
     Dosage: SEE IMAGE
     Route: 048
     Dates: start: 20030407, end: 20031015
  2. LISINOPRIL [Suspect]
     Indication: HYPERTENSION
     Dosage: SEE IMAGE
     Route: 048
     Dates: start: 20031016, end: 20031112
  3. LISINOPRIL [Suspect]
     Indication: HYPERTENSION
     Dosage: SEE IMAGE
     Route: 048
     Dates: start: 20031113, end: 20031215
  4. DYTIDE H (HYDROCHLOROTHIAZIDE, TRIAMTERENE) [Concomitant]

REACTIONS (5)
  - ADHESIOLYSIS [None]
  - CARPAL TUNNEL DECOMPRESSION [None]
  - MOBILITY DECREASED [None]
  - OEDEMA PERIPHERAL [None]
  - SENSORY DISTURBANCE [None]
